FAERS Safety Report 4914641-6 (Version None)
Quarter: 2006Q1

REPORT INFORMATION
  Report Type: 
  Country: None (occurrence: None)
  Receive Date: 20060216
  Receipt Date: 20050330
  Transmission Date: 20060701
  Serious: Yes (Hospitalization, Disabling)
  Sender: FDA-Public Use
  Company Number: US-MERCK-0504USA00143

PATIENT
  Age: 48 Year
  Sex: Male
  Weight: 91 kg

DRUGS (3)
  1. VIOXX [Suspect]
     Indication: SHOULDER OPERATION
     Route: 048
  2. VIOXX [Suspect]
     Indication: KNEE OPERATION
     Route: 048
  3. TYLENOL [Concomitant]
     Indication: PAIN
     Route: 065

REACTIONS (2)
  - ANGINA PECTORIS [None]
  - MYOCARDIAL INFARCTION [None]
